FAERS Safety Report 11275412 (Version 1)
Quarter: 2015Q3

REPORT INFORMATION
  Report Type: Spontaneous
  Country: US (occurrence: None)
  Receive Date: 20150714
  Receipt Date: 20150714
  Transmission Date: 20151125
  Serious: Yes (Other)
  Sender: FDA-Public Use
  Company Number: TPU2015-00324

PATIENT
  Age: 75 Year
  Sex: Female
  Weight: 65.77 kg

DRUGS (7)
  1. LIDODERM [Suspect]
     Active Substance: LIDOCAINE
     Indication: BACK PAIN
     Dosage: 0.5 PLASTER, 1 IN 1 D, TOPICAL
     Route: 061
     Dates: start: 2013
  2. OXYBUTYNIN [Suspect]
     Active Substance: OXYBUTYNIN
     Indication: BLADDER IRRITATION
     Dates: start: 2005
  3. MELOXICAM. [Concomitant]
     Active Substance: MELOXICAM
  4. TRAZODONE [Concomitant]
     Active Substance: TRAZODONE HYDROCHLORIDE
  5. LOSARTAN POTASSIUM. [Concomitant]
     Active Substance: LOSARTAN POTASSIUM
  6. PREMARIN [Concomitant]
     Active Substance: ESTROGENS, CONJUGATED
  7. PREDNISONE. [Concomitant]
     Active Substance: PREDNISONE

REACTIONS (2)
  - Stress fracture [None]
  - Rash generalised [None]

NARRATIVE: CASE EVENT DATE: 201411
